FAERS Safety Report 7726858-6 (Version None)
Quarter: 2011Q3

REPORT INFORMATION
  Report Type: 
  Country: None (occurrence: None)
  Receive Date: 20110902
  Receipt Date: 20110822
  Transmission Date: 20111222
  Serious: Yes (Life-Threatening, Hospitalization)
  Sender: FDA-Public Use
  Company Number: CA-GENENTECH-322595

PATIENT
  Sex: Male

DRUGS (15)
  1. HYZAAR [Concomitant]
     Indication: PRODUCT USED FOR UNKNOWN INDICATION
     Dosage: UNK
  2. RITUXIMAB [Suspect]
     Indication: WEGENER'S GRANULOMATOSIS
     Dosage: 1000 MG, DAYS 1+15
     Route: 042
     Dates: start: 20101129
  3. TYLENOL-500 [Concomitant]
     Indication: PREMEDICATION
     Dosage: 650 MG, UNK
     Route: 048
     Dates: start: 20101213, end: 20101213
  4. ACID FOLIC [Concomitant]
     Indication: PRODUCT USED FOR UNKNOWN INDICATION
     Dosage: UNK
  5. CRESTOR [Concomitant]
     Indication: PRODUCT USED FOR UNKNOWN INDICATION
     Dosage: UNK
  6. OMEPRAZOLE [Concomitant]
     Indication: ULCER
     Dosage: UNK
  7. PREDNISONE [Suspect]
     Indication: WEGENER'S GRANULOMATOSIS
     Dosage: UNK
     Route: 048
  8. CALCIUM CARBONATE [Concomitant]
     Indication: PRODUCT USED FOR UNKNOWN INDICATION
     Dosage: UNK
  9. METHOTREXATE [Concomitant]
     Indication: PRODUCT USED FOR UNKNOWN INDICATION
     Dosage: UNK
  10. HUMALOG [Concomitant]
     Indication: PRODUCT USED FOR UNKNOWN INDICATION
     Dosage: UNK
  11. ASPIRIN [Suspect]
     Indication: CEREBROVASCULAR ACCIDENT
     Dosage: UNK
     Route: 048
     Dates: start: 20000101
  12. BENADRYL [Concomitant]
     Indication: PREMEDICATION
     Dosage: 500 MG, UNK
     Dates: start: 20101213, end: 20101213
  13. PREDNISONE [Suspect]
     Dosage: UNK
     Route: 048
     Dates: start: 20100401
  14. METFORMIN HCL [Concomitant]
     Indication: PRODUCT USED FOR UNKNOWN INDICATION
     Dosage: UNK
  15. SOLU-MEDROL OR PLACEBO [Concomitant]
     Indication: PREMEDICATION
     Dosage: 1000 MG, UNK
     Route: 042
     Dates: start: 20101213

REACTIONS (2)
  - JOINT SWELLING [None]
  - ULCER HAEMORRHAGE [None]
